FAERS Safety Report 10250990 (Version 1)
Quarter: 2014Q2

REPORT INFORMATION
  Report Type: Spontaneous
  Country: US (occurrence: US)
  Receive Date: 20140620
  Receipt Date: 20140620
  Transmission Date: 20141212
  Serious: Yes (Other)
  Sender: FDA-Public Use
  Company Number: US-ROXANE LABORATORIES, INC.-2014-RO-00941RO

PATIENT
  Age: 71 Year
  Sex: Male

DRUGS (4)
  1. CYCLOPHOSPHAMIDE TABLETS USP [Suspect]
     Indication: B-CELL LYMPHOMA
     Route: 065
  2. PREDNISONE [Suspect]
     Indication: B-CELL LYMPHOMA
     Route: 065
  3. HYDROXYDAUNORUBICIN [Suspect]
     Indication: B-CELL LYMPHOMA
     Route: 065
  4. VINCRISTINE [Suspect]
     Indication: B-CELL LYMPHOMA
     Route: 065

REACTIONS (1)
  - Peripheral T-cell lymphoma unspecified [Recovered/Resolved]
